FAERS Safety Report 6120666-8 (Version None)
Quarter: 2009Q1

REPORT INFORMATION
  Report Type: 
  Country: None (occurrence: None)
  Receive Date: 20090312
  Receipt Date: 20090312
  Transmission Date: 20090719
  Serious: Yes (Other)
  Sender: FDA-Public Use
  Company Number: None

PATIENT
  Sex: Male
  Weight: 40.8237 kg

DRUGS (1)
  1. SINGULAIR [Suspect]
     Indication: ASTHMA
     Dosage: 5 MG ONE TAB HS PO ABOUT TWO YEARS
     Route: 048

REACTIONS (6)
  - ABNORMAL DREAMS [None]
  - CRYING [None]
  - FATIGUE [None]
  - FEAR [None]
  - NIGHTMARE [None]
  - SLEEP DISORDER [None]
